FAERS Safety Report 21402829 (Version 3)
Quarter: 2022Q4

REPORT INFORMATION
  Report Type: Other
  Country: DE (occurrence: None)
  Receive Date: 20221003
  Receipt Date: 20221206
  Transmission Date: 20230112
  Serious: Yes (Life-Threatening, Hospitalization, Congenital Anomaly)
  Sender: FDA-Public Use
  Company Number: DE-ROCHE-3190151

PATIENT
  Age: 0 Year
  Sex: Male
  Weight: 3.94 kg

DRUGS (17)
  1. OCRELIZUMAB [Suspect]
     Active Substance: OCRELIZUMAB
     Indication: Product used for unknown indication
     Dosage: DATE OF SECOND ADMINISTRATION 07/OCT/2021
     Route: 050
     Dates: start: 20210923, end: 20211007
  2. OCRELIZUMAB [Suspect]
     Active Substance: OCRELIZUMAB
     Route: 065
     Dates: start: 20221010
  3. FOLIC ACID [Concomitant]
     Active Substance: FOLIC ACID
     Dates: start: 202101, end: 202101
  4. ACETAMINOPHEN [Concomitant]
     Active Substance: ACETAMINOPHEN
     Indication: Prophylaxis
     Dates: start: 20210923, end: 20210923
  5. ACETAMINOPHEN [Concomitant]
     Active Substance: ACETAMINOPHEN
     Dates: start: 20211007, end: 20211007
  6. DIMETHINDENE [Concomitant]
     Active Substance: DIMETHINDENE
     Indication: Prophylaxis
     Dates: start: 20210923, end: 20210923
  7. DIMETHINDENE [Concomitant]
     Active Substance: DIMETHINDENE
     Dates: start: 20211007, end: 20211007
  8. FEMIBION [Concomitant]
     Indication: Prophylaxis
     Dates: start: 20220304, end: 20220624
  9. FEMIBION [Concomitant]
     Dates: start: 202101, end: 202101
  10. CORTISONE ACETATE [Concomitant]
     Active Substance: CORTISONE ACETATE
     Dates: start: 20210923, end: 20210923
  11. CORTISONE ACETATE [Concomitant]
     Active Substance: CORTISONE ACETATE
     Dates: start: 20211007, end: 20211007
  12. DIPHTHERIA, TETANUS AND ACELLULAR PERTUSSIS [Concomitant]
     Dates: start: 20221021
  13. HAEMOPHILUS INFLUENZAE B VACCINE [Concomitant]
     Dates: start: 20221021
  14. HEPATITIS B VIRUS VACCINE [Concomitant]
     Active Substance: HEPATITIS B VIRUS VACCINE
     Dates: start: 20221021
  15. PNEUMOCOCCAL VACCINE POLYVALENT NOS [Concomitant]
     Active Substance: PNEUMOCOCCAL VACCINE POLYVALENT
     Dates: start: 20221021
  16. POLIOMYELITIS VACCINE [Concomitant]
     Active Substance: POLIOMYELITIS VACCINE
     Dates: start: 20221021
  17. HUMAN ROTAVIRUS A [Concomitant]
     Active Substance: HUMAN ROTAVIRUS A
     Dosage: 21/NOV/2022
     Dates: start: 20221021

REACTIONS (4)
  - Respiratory failure [Recovered/Resolved]
  - Foetal exposure during pregnancy [Unknown]
  - Sepsis [Recovered/Resolved]
  - Cerebral cyst [Not Recovered/Not Resolved]

NARRATIVE: CASE EVENT DATE: 20220826
